FAERS Safety Report 8121352-5 (Version None)
Quarter: 2012Q1

REPORT INFORMATION
  Report Type: 
  Country: None (occurrence: None)
  Receive Date: 20120203
  Receipt Date: 20120124
  Transmission Date: 20120608
  Serious: Yes (Other)
  Sender: FDA-Public Use
  Company Number: TPG2012A00086

PATIENT
  Age: 54 Year
  Sex: Female

DRUGS (4)
  1. SIMVASTATIN [Concomitant]
  2. DIAMICRON(GLICLAZIDE) [Concomitant]
  3. PIOGLITAZONE HYDROCHLORIDE/METFORMIN HYDROCHLORIDE [Suspect]
     Indication: TYPE 2 DIABETES MELLITUS
     Dosage: PIOGLITAZONE/METFORMIN 30/1700
     Route: 048
     Dates: start: 20080318
  4. ITERIUM(RILMENIDINE) [Concomitant]

REACTIONS (2)
  - EFFUSION [None]
  - EYE DISORDER [None]
